FAERS Safety Report 4969391-7 (Version None)
Quarter: 2006Q2

REPORT INFORMATION
  Report Type: 
  Country: None (occurrence: None)
  Receive Date: 20060405
  Receipt Date: 20060327
  Transmission Date: 20061013
  Serious: Yes (Other)
  Sender: FDA-Public Use
  Company Number: S06-USA-00170-01

PATIENT
  Age: 67 Year
  Sex: Female

DRUGS (1)
  1. THYROID TAB [Suspect]
     Indication: HYPOTHYROIDISM
     Dosage: 30 MG QD PO
     Route: 048
     Dates: start: 20040820

REACTIONS (18)
  - ABDOMINAL PAIN [None]
  - ABDOMINAL PAIN UPPER [None]
  - ANAPHYLACTIC SHOCK [None]
  - DIARRHOEA [None]
  - DIZZINESS [None]
  - DRUG HYPERSENSITIVITY [None]
  - DRUG TOXICITY [None]
  - DYSPNOEA [None]
  - HYPERHIDROSIS [None]
  - LOSS OF CONSCIOUSNESS [None]
  - NASOPHARYNGITIS [None]
  - NAUSEA [None]
  - PALPITATIONS [None]
  - SYNCOPE [None]
  - THYROID DISORDER [None]
  - TREATMENT NONCOMPLIANCE [None]
  - TREMOR [None]
  - VOMITING [None]
